FAERS Safety Report 11175285 (Version 1)
Quarter: 2015Q2

REPORT INFORMATION
  Report Type: Spontaneous
  Country: US (occurrence: None)
  Receive Date: 20150608
  Receipt Date: 20150608
  Transmission Date: 20150821
  Serious: No
  Sender: FDA-Public Use
  Company Number: None

PATIENT
  Age: 61 Year
  Sex: Female
  Weight: 54.43 kg

DRUGS (9)
  1. CALCIUM [Concomitant]
     Active Substance: CALCIUM
  2. AETIVELLA - HORMONE REPLACEMENT [Concomitant]
  3. MOVE FEET [Concomitant]
  4. ST. JOHN^S WORT [Concomitant]
     Active Substance: ST. JOHN^S WORT
  5. METOPROLOL SUCCINATE ER [Suspect]
     Active Substance: METOPROLOL SUCCINATE
     Indication: HYPERTENSION
     Route: 048
     Dates: start: 20150501, end: 20150510
  6. VITAMIN C [Concomitant]
     Active Substance: ASCORBIC ACID
  7. FISH OIL [Concomitant]
     Active Substance: FISH OIL
  8. TUMERIC [Concomitant]
  9. VITAMIN E [Concomitant]
     Active Substance: .ALPHA.-TOCOPHEROL

REACTIONS (1)
  - Deafness unilateral [None]

NARRATIVE: CASE EVENT DATE: 20150505
